FAERS Safety Report 14448178 (Version 19)
Quarter: 2020Q4

REPORT INFORMATION
  Report Type: Spontaneous
  Country: US (occurrence: US)
  Receive Date: 20180126
  Receipt Date: 20201208
  Transmission Date: 20210113
  Serious: Yes (Hospitalization, Other)
  Sender: FDA-Public Use
  Company Number: US-PFIZER INC-2015070330

PATIENT
  Age: 70 Year
  Sex: Female

DRUGS (7)
  1. LYRICA [Suspect]
     Active Substance: PREGABALIN
     Dosage: 75 MG, 1X/DAY (75 MG, ONCE A DAY (1 CAPSULE EVERY DAY AT BEDTIME)
     Route: 048
     Dates: end: 202002
  2. LYRICA [Suspect]
     Active Substance: PREGABALIN
     Dosage: 25 MG, 1X/DAY (1 TAB BY ORAL ROUTE IN THE MORNING)
     Route: 048
     Dates: start: 2020, end: 2020
  3. LYRICA [Suspect]
     Active Substance: PREGABALIN
     Dosage: 100 MG, DAILY (25 MG IN THE MORNING AND 75 MG AT BED TIME)
     Route: 048
     Dates: start: 2020, end: 2020
  4. LYRICA [Suspect]
     Active Substance: PREGABALIN
     Indication: FIBROMYALGIA
     Dosage: 1X/DAY, (HS, REPORTED AS 50 1X AND 25 1X)
  5. LYRICA [Suspect]
     Active Substance: PREGABALIN
     Dosage: 50 MG, 1X/DAY (50 MG, ONCE A DAY (HS (AT BEDTIME))
  6. LYRICA [Suspect]
     Active Substance: PREGABALIN
     Indication: INSOMNIA
     Dosage: 100 MG, DAILY
     Route: 048
  7. CELEBREX [Concomitant]
     Active Substance: CELECOXIB
     Dosage: UNK

REACTIONS (7)
  - Gastric perforation [Unknown]
  - Autoimmune disorder [Unknown]
  - Coagulopathy [Unknown]
  - Neoplasm malignant [Unknown]
  - Weight decreased [Unknown]
  - Aortic rupture [Recovered/Resolved]
  - Systemic lupus erythematosus [Unknown]

NARRATIVE: CASE EVENT DATE: 20171108
